FAERS Safety Report 5203713-7 (Version None)
Quarter: 2007Q1

REPORT INFORMATION
  Report Type: 
  Country: None (occurrence: None)
  Receive Date: 20070110
  Receipt Date: 20070102
  Transmission Date: 20070707
  Serious: Yes (Disabling, Other)
  Sender: FDA-Public Use
  Company Number: CA-ELI_LILLY_AND_COMPANY-CA200701000937

PATIENT
  Sex: Male

DRUGS (3)
  1. ZYPREXA [Suspect]
     Indication: SCHIZOPHRENIA
     Dosage: 20 MG, DAILY (1/D)
     Route: 048
  2. LOXAPINE [Concomitant]
  3. FLUANXOL ^LUNDBECK^ [Concomitant]

REACTIONS (13)
  - BODY TEMPERATURE INCREASED [None]
  - BRAIN DAMAGE [None]
  - DYSARTHRIA [None]
  - DYSKINESIA [None]
  - FALL [None]
  - FEELING OF DESPAIR [None]
  - FRONTAL LOBE EPILEPSY [None]
  - GLAUCOMA [None]
  - IMPAIRED DRIVING ABILITY [None]
  - IMPAIRED WORK ABILITY [None]
  - LOSS OF CONSCIOUSNESS [None]
  - MUSCULOSKELETAL STIFFNESS [None]
  - TINNITUS [None]
